FAERS Safety Report 7197642-X (Version None)
Quarter: 2010Q4

REPORT INFORMATION
  Report Type: 
  Country: None (occurrence: None)
  Receive Date: 20101227
  Receipt Date: 20101213
  Transmission Date: 20110411
  Serious: Yes (Hospitalization)
  Sender: FDA-Public Use
  Company Number: US-SANOFI-AVENTIS-2010SA070111

PATIENT
  Age: 81 Year
  Sex: Female
  Weight: 98 kg

DRUGS (2)
  1. MULTAQ [Suspect]
     Indication: ATRIAL FIBRILLATION
     Route: 048
     Dates: start: 20100325, end: 20101026
  2. BACTRIM [Suspect]
     Route: 048

REACTIONS (5)
  - BLOOD BILIRUBIN INCREASED [None]
  - CONDITION AGGRAVATED [None]
  - JAUNDICE [None]
  - LIVER INJURY [None]
  - MENTAL STATUS CHANGES [None]
